FAERS Safety Report 5263384-0 (Version None)
Quarter: 2007Q1

REPORT INFORMATION
  Report Type: 
  Country: None (occurrence: None)
  Receive Date: 20070313
  Receipt Date: 20070302
  Transmission Date: 20070707
  Serious: Yes (Death)
  Sender: FDA-Public Use
  Company Number: JP-JNJFOC-20060900306

PATIENT
  Sex: Male

DRUGS (11)
  1. REMICADE [Suspect]
     Route: 042
  2. REMICADE [Suspect]
     Dosage: 4 INFUSIONS ON UNKNOWN DATES
     Route: 042
  3. REMICADE [Suspect]
     Dosage: 4 INFUSIONS ON UNKNOWN DATES
     Route: 042
  4. REMICADE [Suspect]
     Dosage: 4 INFUSIONS ON UNKNOWN DATES
     Route: 042
  5. REMICADE [Suspect]
     Dosage: 4 INFUSIONS ON UNKNOWN DATES
     Route: 042
  6. REMICADE [Suspect]
     Indication: RHEUMATOID ARTHRITIS
     Dosage: 4 INFUSIONS ON UNKNOWN DATES
     Route: 042
  7. RHEUMATREX [Suspect]
     Indication: RHEUMATOID ARTHRITIS
     Route: 048
  8. PREDONINE [Concomitant]
     Route: 048
  9. FOLIAMIN [Concomitant]
     Route: 048
  10. HYPEN [Concomitant]
     Dosage: 2 TABS DAILY
     Route: 048
  11. GASTER [Concomitant]
     Dosage: ^2DF^
     Route: 048

REACTIONS (1)
  - PNEUMOCYSTIS JIROVECI PNEUMONIA [None]
